FAERS Safety Report 4375848-2 (Version None)
Quarter: 2004Q2

REPORT INFORMATION
  Report Type: 
  Country: None (occurrence: None)
  Receive Date: 20040611
  Receipt Date: 20040504
  Transmission Date: 20050107
  Serious: Yes (Hospitalization)
  Sender: FDA-Public Use
  Company Number: IT-ROCHE-366401

PATIENT
  Age: 60 Year
  Sex: Female

DRUGS (7)
  1. ROCEPHIN [Suspect]
     Indication: SKIN ULCER
     Dosage: FORM REPORTED AS VIAL
     Route: 042
     Dates: start: 20040314, end: 20040325
  2. TARGOSID [Suspect]
     Indication: SKIN ULCER
     Dosage: FORM REPORTED AS VIAL.
     Route: 042
     Dates: start: 20040314, end: 20040325
  3. FUROSEMIDE [Concomitant]
     Route: 048
  4. DOXAZOSIN [Concomitant]
     Route: 048
  5. NADROPARINA [Concomitant]
     Dosage: FORM REPORTED AS VIAL
     Route: 058
  6. QUINAPRIL + HYDROCHLORTHIAZIDE [Concomitant]
  7. UNIDENTIFIED [Suspect]
     Indication: DRUG USE FOR UNKNOWN INDICATION
     Dosage: DRUG NAME ACTICOAT.
     Route: 062

REACTIONS (4)
  - DERMATITIS [None]
  - ERYTHEMA [None]
  - PARAESTHESIA [None]
  - RASH MACULO-PAPULAR [None]
